FAERS Safety Report 4777967-5 (Version None)
Quarter: 2005Q3

REPORT INFORMATION
  Report Type: 
  Country: None (occurrence: None)
  Receive Date: 20050921
  Receipt Date: 20050912
  Transmission Date: 20060218
  Serious: Yes (Other)
  Sender: FDA-Public Use
  Company Number: 12303

PATIENT
  Age: 74 Year
  Sex: Male
  Weight: 70 kg

DRUGS (12)
  1. FLUOROURACIL [Suspect]
     Indication: BILIARY NEOPLASM
     Dosage: 375 MG/M2 OTH IV
     Route: 042
     Dates: start: 20050704
  2. LEUCOVORIN CALCIUM [Suspect]
     Indication: BILIARY NEOPLASM
     Dosage: 25 MG/M2 OTH IV
     Route: 042
     Dates: start: 20050704
  3. ACETAMINOPHEN W/ CODEINE [Concomitant]
  4. XAXPLAE [Concomitant]
  5. METOCLOPRAMIDE [Concomitant]
  6. CORSODYL [Concomitant]
  7. DIFFLAM [Concomitant]
  8. LANSOPRAZOLE [Concomitant]
  9. CIPROFLOXACIN [Concomitant]
  10. CHLORSSTRAMINE [Concomitant]
  11. NIFEDIPINE [Concomitant]
  12. ASPIRIN [Concomitant]

REACTIONS (4)
  - ABDOMINAL PAIN [None]
  - BLOOD SODIUM DECREASED [None]
  - INFECTION [None]
  - PYREXIA [None]
